FAERS Safety Report 5545100-8 (Version None)
Quarter: 2007Q4

REPORT INFORMATION
  Report Type: 
  Country: None (occurrence: None)
  Receive Date: 20071210
  Receipt Date: 20070116
  Transmission Date: 20080405
  Serious: No
  Sender: FDA-Public Use
  Company Number: US-AMGEN-KDL207336

PATIENT
  Sex: Female

DRUGS (2)
  1. ENBREL [Suspect]
     Indication: ANKYLOSING SPONDYLITIS
     Route: 058
     Dates: start: 20061115
  2. METHOTREXATE [Concomitant]
     Dates: start: 20050101

REACTIONS (7)
  - COUGH [None]
  - DYSPNOEA [None]
  - HEADACHE [None]
  - INFLUENZA [None]
  - INJECTION SITE REACTION [None]
  - PAIN [None]
  - RESPIRATORY TRACT CONGESTION [None]
